FAERS Safety Report 7953336-1 (Version None)
Quarter: 2011Q4

REPORT INFORMATION
  Report Type: 
  Country: None (occurrence: None)
  Receive Date: 20111202
  Receipt Date: 20111128
  Transmission Date: 20120403
  Serious: Yes (Other)
  Sender: FDA-Public Use
  Company Number: NL-BIOGENIDEC-2011BI038827

PATIENT
  Age: 34 Year
  Sex: Male

DRUGS (7)
  1. FURADANTIN [Concomitant]
  2. SYMMETREL [Concomitant]
  3. CARBAMAZEPINE [Concomitant]
     Indication: EPILEPSY
     Route: 048
  4. FERROGRADUMET [Concomitant]
  5. TYSABRI [Suspect]
     Indication: RELAPSING-REMITTING MULTIPLE SCLEROSIS
     Route: 042
     Dates: start: 20080122
  6. SOLU-MEDROL [Concomitant]
     Dates: start: 20110727, end: 20110731
  7. VESICARE [Concomitant]

REACTIONS (1)
  - OESOPHAGITIS [None]
